FAERS Safety Report 9011865 (Version 1)
Quarter: 2013Q1

REPORT INFORMATION
  Report Type: Spontaneous
  Country: CN (occurrence: CN)
  Receive Date: 20130113
  Receipt Date: 20130113
  Transmission Date: 20140127
  Serious: Yes (Other)
  Sender: FDA-Public Use
  Company Number: PHHY2012CN122936

PATIENT
  Age: 6 Year
  Sex: Male
  Weight: 22 kg

DRUGS (1)
  1. VOTALIN [Suspect]
     Indication: INJURY
     Dosage: 2 DRP, BID
     Dates: start: 20100816, end: 20100817

REACTIONS (3)
  - Anaphylactoid reaction [Recovered/Resolved]
  - Pruritus [Recovered/Resolved]
  - Erythema [Recovered/Resolved]
